FAERS Safety Report 4368873-9 (Version None)
Quarter: 2004Q2

REPORT INFORMATION
  Report Type: 
  Country: None (occurrence: None)
  Receive Date: 20040527
  Receipt Date: 20040511
  Transmission Date: 20050107
  Serious: Yes (Death, Hospitalization)
  Sender: FDA-Public Use
  Company Number: US_030694991

PATIENT
  Age: 7 Year
  Sex: Female

DRUGS (2)
  1. HUMATROPE [Suspect]
     Indication: GROWTH HORMONE DEFICIENCY
     Dosage: 1.2 MG/6 WEEK
     Dates: start: 20020703, end: 20030401
  2. SYNTHROID (LEVOTHYROXINE SODIJM) [Concomitant]

REACTIONS (9)
  - MALIGNANT NEOPLASM PROGRESSION [None]
  - MASS [None]
  - METASTASES TO LIVER [None]
  - METASTASES TO NECK [None]
  - NECK PAIN [None]
  - NEUROBLASTOMA [None]
  - PHYSICAL EXAMINATION ABNORMAL [None]
  - RECURRENT CANCER [None]
  - TENDERNESS [None]
